FAERS Safety Report 11969766 (Version 1)
Quarter: 2016Q1

REPORT INFORMATION
  Report Type: Spontaneous
  Country: US (occurrence: None)
  Receive Date: 20160127
  Receipt Date: 20160127
  Transmission Date: 20160526
  Serious: Yes (Disabling)
  Sender: FDA-Public Use
  Company Number: None

PATIENT
  Age: 50 Year
  Sex: Male
  Weight: 90.72 kg

DRUGS (1)
  1. INSULIN [Suspect]
     Active Substance: INSULIN NOS
     Indication: DIABETES MELLITUS

REACTIONS (5)
  - Diabetes mellitus inadequate control [None]
  - Weight decreased [None]
  - Drug abuse [None]
  - Decreased appetite [None]
  - Therapeutic response unexpected [None]

NARRATIVE: CASE EVENT DATE: 20160125
